FAERS Safety Report 21196032 (Version 1)
Quarter: 2022Q3

REPORT INFORMATION
  Report Type: Report from Study
  Country: FR (occurrence: FR)
  Receive Date: 20220810
  Receipt Date: 20220810
  Transmission Date: 20221026
  Serious: Yes (Other)
  Sender: FDA-Public Use
  Company Number: FR-NORDICGR-2022002024

PATIENT
  Age: 63 Year
  Sex: Male
  Weight: 87 kg

DRUGS (9)
  1. TRASYLOL [Suspect]
     Active Substance: APROTININ
     Indication: Aortic valve replacement
     Dosage: 350 MILLILITRE TOTAL LOADING DOSE 1 MILLION KIU PUMP PRIMING DOSE 1 M KIU CONTINUOUS INFUSION DOSE 1
     Route: 042
     Dates: start: 20210812, end: 20210812
  2. TRASYLOL [Suspect]
     Active Substance: APROTININ
     Indication: Aortic surgery
  3. ASPIRIN [Concomitant]
     Active Substance: ASPIRIN
     Indication: Antiplatelet therapy
     Dosage: UNK
  4. HEPARIN [Concomitant]
     Active Substance: HEPARIN SODIUM
     Indication: Anticoagulant therapy
     Dosage: 45 KILO-INTERNATIONAL UNIT DURING SURGERY
     Dates: start: 20210812, end: 20210812
  5. HUMAN RED BLOOD CELL [Concomitant]
     Active Substance: HUMAN RED BLOOD CELL
     Indication: Transfusion
     Dosage: 1800 MILLILITRE INTRAOPERATIVELY AND UP TO 48 HOURS AFTER SURGERY
     Dates: start: 20210812
  6. PLATELETS [Concomitant]
     Active Substance: HUMAN PLATELET, ALLOGENIC
     Indication: Transfusion
     Dosage: 366 MILLILITRE INTRAOPERATIVELY AND UP TO 48 HOURS AFTER SURGERY
     Dates: start: 20210812
  7. FRESH FROZEN PLASMA [Concomitant]
     Active Substance: HUMAN PLASMA
     Indication: Transfusion
     Dosage: 1137 MILLILITRE INTRAOPERATIVELY AND UP TO 48 HOURS AFTER SURGERY
     Dates: start: 20210812
  8. PROTHROMBIN COMPLEX CONCENTRATE NOS [Concomitant]
     Active Substance: COAGULATION FACTOR IX HUMAN\COAGULATION FACTOR VII HUMAN\COAGULATION FACTOR X HUMAN\PROTHROMBIN
     Indication: Transfusion
     Dosage: 1000 MILLILITRE INTRAOPERATIVELY AND UP TO 48 HOURS AFTER SURGERY
     Dates: start: 20210812
  9. FIBRINOGEN [Concomitant]
     Active Substance: FIBRINOGEN HUMAN
     Indication: Transfusion
     Dosage: 4 GRAM INTRAOPERATIVELY AND UP TO 48 HOURS AFTER SURGERY
     Dates: start: 20210812

REACTIONS (3)
  - Venous thrombosis [Recovered/Resolved]
  - Product use in unapproved indication [Unknown]
  - Off label use [None]

NARRATIVE: CASE EVENT DATE: 20210812
